FAERS Safety Report 24546375 (Version 1)
Quarter: 2024Q4

REPORT INFORMATION
  Report Type: Other
  Country: IN (occurrence: IN)
  Receive Date: 20241024
  Receipt Date: 20241024
  Transmission Date: 20250115
  Serious: Yes (Other)
  Sender: INNOGENIX, LLC
  Company Number: IN-Innogenix, LLC-2163318

PATIENT
  Sex: Female

DRUGS (15)
  1. PROPRANOLOL HYDROCHLORIDE [Suspect]
     Active Substance: PROPRANOLOL HYDROCHLORIDE
     Indication: Migraine
  2. IBUPROFEN [Suspect]
     Active Substance: IBUPROFEN
  3. FLUNARIZINE [Suspect]
     Active Substance: FLUNARIZINE
  4. PREDNISOLONE [Suspect]
     Active Substance: PREDNISOLONE
  5. NAPROXEN\SUMATRIPTAN SUCCINATE [Suspect]
     Active Substance: NAPROXEN\SUMATRIPTAN SUCCINATE
  6. ACETAMINOPHEN\CAFFEINE\ERGOTAMINE\PROCHLORPERAZINE [Suspect]
     Active Substance: ACETAMINOPHEN\CAFFEINE\ERGOTAMINE\PROCHLORPERAZINE
  7. DICLOFENAC SODIUM [Suspect]
     Active Substance: DICLOFENAC SODIUM
  8. VALPROATE SODIUM [Suspect]
     Active Substance: VALPROATE SODIUM
  9. AMITRIPTYLINE HYDROCHLORIDE [Suspect]
     Active Substance: AMITRIPTYLINE HYDROCHLORIDE
  10. ERGOTAMINE [Suspect]
     Active Substance: CAFFEINE\ERGOTAMINE\ERGOTAMINE TARTRATE
     Dates: start: 2022
  11. RIZATRIPTAN [Suspect]
     Active Substance: RIZATRIPTAN
  12. TRAMADOL [Suspect]
     Active Substance: TRAMADOL
  13. TOPIRAMATE [Suspect]
     Active Substance: TOPIRAMATE
  14. SUMATRIPTAN [Suspect]
     Active Substance: SUMATRIPTAN
     Dates: start: 202201
  15. NAPROXEN [Suspect]
     Active Substance: NAPROXEN

REACTIONS (2)
  - Serotonin syndrome [Recovered/Resolved]
  - Drug ineffective [Unknown]
